FAERS Safety Report 16377660 (Version 2)
Quarter: 2019Q2

REPORT INFORMATION
  Report Type: Report from Study
  Country: MX (occurrence: MX)
  Receive Date: 20190531
  Receipt Date: 20190625
  Transmission Date: 20190711
  Serious: Yes (Other)
  Sender: FDA-Public Use
  Company Number: PHHY2019MX125349

PATIENT
  Age: 50 Year
  Sex: Male

DRUGS (2)
  1. XILIARXS-DUO [Suspect]
     Active Substance: METFORMIN HYDROCHLORIDE\VILDAGLIPTIN
     Dosage: 1 DF (METFORMIN 850, VILDAGLIPTIN 50), TID (EVERY 8 HRS)
     Route: 065
  2. XILIARXS-DUO [Suspect]
     Active Substance: METFORMIN HYDROCHLORIDE\VILDAGLIPTIN
     Indication: DIABETES MELLITUS
     Dosage: 1 DF (METFORMIN 500, VILDAGLIPTIN 50), BID (1 YEAR 4 MONTHS AGO APPROX)
     Route: 065

REACTIONS (5)
  - Prescribed overdose [Not Recovered/Not Resolved]
  - Accident [Unknown]
  - Blister [Recovered/Resolved]
  - Blister [Recovered/Resolved]
  - Diabetes mellitus inadequate control [Unknown]

NARRATIVE: CASE EVENT DATE: 201812
